FAERS Safety Report 8380749-9 (Version None)
Quarter: 2012Q2

REPORT INFORMATION
  Report Type: 
  Country: None (occurrence: None)
  Receive Date: 20120523
  Receipt Date: 20120516
  Transmission Date: 20120825
  Serious: No
  Sender: FDA-Public Use
  Company Number: US-PFIZER INC-2012119326

PATIENT
  Sex: Male
  Weight: 18 kg

DRUGS (3)
  1. GENOTROPIN [Suspect]
     Dosage: 1 MG, 1XDAY, (7 INJECTIONS/WEEK)
     Route: 058
  2. MULTI-VITAMINS [Concomitant]
     Dosage: UNK
  3. ONDANSETRON [Concomitant]
     Dosage: 4 MG, UNK

REACTIONS (2)
  - VOMITING [None]
  - NAUSEA [None]
